FAERS Safety Report 22525125 (Version 1)
Quarter: 2023Q2

REPORT INFORMATION
  Report Type: Other
  Country: None (occurrence: A1)
  Receive Date: 20230606
  Receipt Date: 20230606
  Transmission Date: 20230722
  Serious: Yes (Hospitalization)
  Sender: FDA-Public Use
  Company Number: A1-Nephron Pharmaceuticals Corporation-2142358

PATIENT
  Age: 24 Day
  Sex: Male

DRUGS (6)
  1. SODIUM CHLORIDE [Suspect]
     Active Substance: SODIUM CHLORIDE
     Indication: Metabolic acidosis
     Route: 054
  2. LACTATED RINGERS SOLUTION [Concomitant]
     Active Substance: CALCIUM CHLORIDE\POTASSIUM CHLORIDE\SODIUM CHLORIDE\SODIUM LACTATE
  3. METRONIDAZOLE [Concomitant]
     Active Substance: METRONIDAZOLE
  4. CEFTRIAXONE [Concomitant]
     Active Substance: CEFTRIAXONE
  5. POTASSIUM CHLORIDE [Concomitant]
     Active Substance: POTASSIUM CHLORIDE
  6. SODIUM BICARBONATE [Concomitant]
     Active Substance: SODIUM BICARBONATE

REACTIONS (1)
  - Metabolic acidosis [Recovering/Resolving]
